FAERS Safety Report 7969950-3 (Version None)
Quarter: 2011Q4

REPORT INFORMATION
  Report Type: 
  Country: None (occurrence: None)
  Receive Date: 20111212
  Receipt Date: 20111206
  Transmission Date: 20120403
  Serious: Yes (Hospitalization, Other)
  Sender: FDA-Public Use
  Company Number: US-BRISTOL-MYERS SQUIBB COMPANY-12645016

PATIENT
  Age: 76 Year
  Sex: Male
  Weight: 62 kg

DRUGS (7)
  1. HUMIBID [Concomitant]
  2. HYCODAN [Concomitant]
  3. ADVAIR DISKUS 100/50 [Concomitant]
  4. ERBITUX [Suspect]
     Indication: NON-SMALL CELL LUNG CANCER
     Dosage: PATIENT STOPPED TREATMENT. LAST DOSE:12JUL04
     Route: 042
     Dates: start: 20040712
  5. LANOXIN [Suspect]
  6. OXYCODONE HCL [Suspect]
  7. COMBIVENT [Concomitant]

REACTIONS (6)
  - HYPERSENSITIVITY [None]
  - HEADACHE [None]
  - DYSPNOEA [None]
  - SYNCOPE [None]
  - FATIGUE [None]
  - ATAXIA [None]
